FAERS Safety Report 25734734 (Version 1)
Quarter: 2025Q3

REPORT INFORMATION
  Report Type: Report from Study
  Country: IN (occurrence: IN)
  Receive Date: 20250828
  Receipt Date: 20250828
  Transmission Date: 20251021
  Serious: Yes (Hospitalization)
  Sender: MERCK SHARP & DOHME LLC
  Company Number: IN-AstraZeneca-2024A182976

PATIENT
  Age: 40 Year
  Sex: Female
  Weight: 57 kg

DRUGS (22)
  1. PEMBROLIZUMAB [Suspect]
     Active Substance: PEMBROLIZUMAB
     Indication: Triple negative breast cancer
     Dosage: 200 MG, ONCE EVERY 3 WK
     Route: 042
     Dates: start: 20250421, end: 20250421
  2. PEMBROLIZUMAB [Suspect]
     Active Substance: PEMBROLIZUMAB
     Indication: Triple negative breast cancer
     Dosage: 200 MG, ONCE EVERY 3 WK
     Route: 042
     Dates: start: 20240510, end: 20241113
  3. PEMBROLIZUMAB [Suspect]
     Active Substance: PEMBROLIZUMAB
     Indication: Triple negative breast cancer
     Dosage: 200 MG, ONCE EVERY 3 WK
     Route: 042
     Dates: start: 20250124, end: 20250213
  4. PEMBROLIZUMAB [Suspect]
     Active Substance: PEMBROLIZUMAB
     Indication: Triple negative breast cancer
     Dosage: 200 MG, ONCE EVERY 3 WK
     Route: 042
     Dates: start: 20250624, end: 20250624
  5. PEMBROLIZUMAB [Suspect]
     Active Substance: PEMBROLIZUMAB
     Indication: Triple negative breast cancer
     Dosage: 200 MG, ONCE EVERY 3 WK
     Route: 042
     Dates: start: 20250603, end: 20250603
  6. PEMBROLIZUMAB [Suspect]
     Active Substance: PEMBROLIZUMAB
     Indication: Triple negative breast cancer
     Dosage: 200 MG, ONCE EVERY 3 WK
     Route: 042
     Dates: start: 20250329, end: 20250329
  7. PEMBROLIZUMAB [Suspect]
     Active Substance: PEMBROLIZUMAB
     Indication: Triple negative breast cancer
     Dosage: 200 MG, ONCE EVERY 3 WK
     Route: 042
     Dates: start: 20250715, end: 20250715
  8. PEMBROLIZUMAB [Suspect]
     Active Substance: PEMBROLIZUMAB
     Indication: Triple negative breast cancer
     Dosage: 200 MG, ONCE EVERY 3 WK
     Route: 042
     Dates: start: 20250308, end: 20250308
  9. PEMBROLIZUMAB [Suspect]
     Active Substance: PEMBROLIZUMAB
     Indication: Triple negative breast cancer
     Dosage: 200 MG, ONCE EVERY 3 WK
     Route: 042
     Dates: start: 20250513, end: 20250513
  10. CARBOPLATIN [Suspect]
     Active Substance: CARBOPLATIN
     Indication: Triple negative breast cancer
     Dosage: 5 AUC, ONCE EVERY 3 WK
     Route: 042
     Dates: start: 20240510, end: 20240717
  11. PACLITAXEL [Suspect]
     Active Substance: PACLITAXEL
     Indication: Triple negative breast cancer
     Dosage: 80 MG/M2, ONCE EVERY 1 WK
     Route: 042
     Dates: start: 20240510, end: 20240717
  12. VITAMINS NOS [Concomitant]
     Active Substance: VITAMINS
     Indication: Vitamin supplementation
     Dosage: 1 DOSAGE FORM, QD
     Route: 048
     Dates: start: 20240511
  13. VITAMINS NOS [Concomitant]
     Active Substance: VITAMINS
     Indication: Vitamin supplementation
     Dosage: 1 DOSAGE FORM, QD
     Route: 048
     Dates: start: 20240610
  14. LACTULOSE [Concomitant]
     Active Substance: LACTULOSE
     Indication: Constipation
     Route: 048
     Dates: start: 20240605
  15. BETADINE [Concomitant]
     Active Substance: POVIDONE-IODINE
     Indication: Mucolytic treatment
     Dosage: 20 ML, QD (10ML)
     Route: 061
     Dates: start: 20240510
  16. PANTOPRAZOLE SODIUM [Concomitant]
     Active Substance: PANTOPRAZOLE SODIUM
     Indication: Vomiting
     Route: 061
     Dates: start: 20240610
  17. DEXAMETHASONE SODIUM PHOSPHATE [Concomitant]
     Active Substance: DEXAMETHASONE SODIUM PHOSPHATE
     Indication: Hypersensitivity
     Route: 042
     Dates: start: 20240610
  18. Cremaffin [Concomitant]
     Indication: Constipation
     Route: 048
     Dates: start: 20240511
  19. FOLIC ACID [Concomitant]
     Active Substance: FOLIC ACID
     Indication: Supplementation therapy
     Dosage: 5 MG, QD
     Route: 048
     Dates: start: 20240724
  20. METHYLCOBALAMIN [Concomitant]
     Active Substance: METHYLCOBALAMIN
     Indication: Vitamin supplementation
     Dosage: 1500 UG, QD
     Route: 048
     Dates: start: 20240724
  21. BENZOCAINE [Concomitant]
     Indication: Mucosal inflammation
     Dosage: 45 G, QD (15 G, TID)
     Route: 061
     Dates: start: 20240724
  22. BENZOCAINE [Concomitant]
     Indication: Mucosal inflammation
     Dosage: 45 G, QD (15 G, TID)
     Route: 061
     Dates: start: 20240628

REACTIONS (1)
  - Stomatitis [Recovered/Resolved]

NARRATIVE: CASE EVENT DATE: 20240809
